FAERS Safety Report 6370818-7 (Version None)
Quarter: 2009Q3

REPORT INFORMATION
  Report Type: 
  Country: None (occurrence: None)
  Receive Date: 20090923
  Receipt Date: 20070605
  Transmission Date: 20100115
  Serious: Yes (Other)
  Sender: FDA-Public Use
  Company Number: US-ASTRAZENECA-2006UW24802

PATIENT
  Sex: Female
  Weight: 72.6 kg

DRUGS (23)
  1. SEROQUEL [Suspect]
     Indication: MENTAL DISORDER
     Dosage: 25-300 MG
     Route: 048
     Dates: start: 20060104
  2. SEROQUEL [Suspect]
     Route: 048
  3. CLOZARIL [Concomitant]
  4. EFFEXOR [Concomitant]
     Route: 048
  5. HALDOL [Concomitant]
  6. GLUCAGON [Concomitant]
  7. KLONOPIN [Concomitant]
     Route: 048
  8. CELEXA [Concomitant]
     Dosage: 20-30 MG
     Route: 048
  9. BUSPAR [Concomitant]
     Dosage: 10-60 MG
     Route: 048
  10. FLEXERIL [Concomitant]
     Dosage: 10-30 MG
     Route: 048
  11. ACTOS [Concomitant]
     Route: 048
  12. LIPITOR [Concomitant]
     Dosage: 20-80 MG
     Route: 048
  13. GLUCOPHAGE [Concomitant]
     Route: 048
  14. VERELAN [Concomitant]
     Dosage: 100-240 MG
     Route: 048
  15. VICOPROFEN [Concomitant]
     Route: 048
  16. AMITRIPTYLINE [Concomitant]
     Route: 048
  17. CYCLOBENZAPRINE [Concomitant]
     Route: 048
  18. LEXAPRO [Concomitant]
     Route: 048
  19. TRAMADOL HCL [Concomitant]
     Route: 048
  20. WELLBUTRIN [Concomitant]
     Route: 048
  21. ZOLOFT [Concomitant]
     Route: 048
  22. PREDNISOLONE [Concomitant]
     Route: 048
  23. GABAPENTIN [Concomitant]
     Dosage: 300-600 MG
     Route: 048

REACTIONS (2)
  - DIABETES MELLITUS [None]
  - TARDIVE DYSKINESIA [None]
